FAERS Safety Report 5815844-9 (Version None)
Quarter: 2008Q3

REPORT INFORMATION
  Report Type: 
  Country: None (occurrence: None)
  Receive Date: 20080721
  Receipt Date: 20080708
  Transmission Date: 20090109
  Serious: Yes (Death, Hospitalization)
  Sender: FDA-Public Use
  Company Number: US-JNJFOC-20030601032

PATIENT
  Sex: Male

DRUGS (19)
  1. REMICADE [Suspect]
     Route: 042
  2. REMICADE [Suspect]
     Indication: RHEUMATOID ARTHRITIS
     Route: 042
  3. LEVAQUIN [Concomitant]
  4. METHOTREXATE [Concomitant]
  5. PREDNISONE TAB [Concomitant]
  6. FOSAMAX [Concomitant]
  7. AMIODARONE HCL [Concomitant]
  8. ASPIRIN [Concomitant]
  9. CALCIUM WITH VITAMIN D [Concomitant]
  10. TYLENOL W/ CODEINE NO. 3 [Concomitant]
  11. REMERON [Concomitant]
  12. TRAZODONE HCL [Concomitant]
  13. ISOSORBIDE DINITRATE [Concomitant]
  14. IRBESARTAN [Concomitant]
  15. COUMADIN [Concomitant]
  16. FUROSEMIDE [Concomitant]
  17. SIMVASTATIN [Concomitant]
  18. CHOLESTYRAMINE [Concomitant]
  19. ARAVA [Concomitant]

REACTIONS (31)
  - ACTIVITIES OF DAILY LIVING IMPAIRED [None]
  - ASTHENIA [None]
  - ATRIAL FIBRILLATION [None]
  - CARDIO-RESPIRATORY ARREST [None]
  - CHEST PAIN [None]
  - CHILLS [None]
  - DIARRHOEA [None]
  - DRY MOUTH [None]
  - DYSPNOEA [None]
  - EXTRASYSTOLES [None]
  - GAIT DISTURBANCE [None]
  - GASTROINTESTINAL HAEMORRHAGE [None]
  - HAEMATOCHEZIA [None]
  - HAEMOGLOBIN DECREASED [None]
  - HEADACHE [None]
  - HYPOPHAGIA [None]
  - LIVER FUNCTION TEST ABNORMAL [None]
  - MYOCARDIAL ISCHAEMIA [None]
  - NAUSEA [None]
  - NEOPLASM [None]
  - PNEUMONIA [None]
  - RESPIRATORY DISTRESS [None]
  - RESPIRATORY FAILURE [None]
  - SINUS DISORDER [None]
  - STAPHYLOCOCCAL SEPSIS [None]
  - SUPRAVENTRICULAR TACHYCARDIA [None]
  - SYNOVITIS [None]
  - TACHYPNOEA [None]
  - TUBERCULOSIS [None]
  - URINARY TRACT INFECTION [None]
  - WHEEZING [None]
